FAERS Safety Report 9892975 (Version 1)
Quarter: 2014Q1

REPORT INFORMATION
  Report Type: Report from Study
  Country: US (occurrence: US)
  Receive Date: 20140213
  Receipt Date: 20140213
  Transmission Date: 20141002
  Serious: Yes (Other)
  Sender: FDA-Public Use
  Company Number: US-ROCHE-1344518

PATIENT
  Sex: Male
  Weight: 51.8 kg

DRUGS (2)
  1. NUTROPIN AQ [Suspect]
     Indication: GROWTH HORMONE DEFICIENCY
     Route: 058
     Dates: end: 20130717
  2. NUTROPIN AQ [Suspect]
     Route: 058
     Dates: start: 20130717

REACTIONS (2)
  - Chronic sinusitis [Unknown]
  - Nuclear magnetic resonance imaging abnormal [Unknown]
